APPROVED DRUG PRODUCT: BENOXINATE HYDROCHLORIDE
Active Ingredient: BENOXINATE HYDROCHLORIDE
Strength: 0.4%
Dosage Form/Route: SOLUTION/DROPS;OPHTHALMIC
Application: A084149 | Product #001
Applicant: SOLA BARNES HIND
Approved: Approved Prior to Jan 1, 1982 | RLD: No | RS: No | Type: DISCN